FAERS Safety Report 10761397 (Version 1)
Quarter: 2015Q1

REPORT INFORMATION
  Report Type: Spontaneous
  Country: None (occurrence: None)
  Receive Date: 20150203
  Receipt Date: 20150203
  Transmission Date: 20150721
  Serious: No
  Sender: FDA-Public Use
  Company Number: None

PATIENT
  Age: 22 Year
  Sex: Male
  Weight: 85 kg

DRUGS (3)
  1. MIRVASO [Suspect]
     Active Substance: BRIMONIDINE TARTRATE
     Indication: ROSACEA
     Dosage: ONE TUBE, ONCE DAILY
     Route: 048
     Dates: start: 20141106, end: 20141227
  2. MIRVASO [Suspect]
     Active Substance: BRIMONIDINE TARTRATE
     Indication: TELANGIECTASIA
     Dosage: ONE TUBE, ONCE DAILY
     Route: 048
     Dates: start: 20141106, end: 20141227
  3. MIRVASO [Suspect]
     Active Substance: BRIMONIDINE TARTRATE
     Indication: ERYTHEMA
     Dosage: ONE TUBE, ONCE DAILY
     Route: 048
     Dates: start: 20141106, end: 20141227

REACTIONS (1)
  - Rosacea [None]
